FAERS Safety Report 5961860-6 (Version None)
Quarter: 2008Q4

REPORT INFORMATION
  Report Type: 
  Country: None (occurrence: None)
  Receive Date: 20081121
  Receipt Date: 20080505
  Transmission Date: 20090506
  Serious: No
  Sender: FDA-Public Use
  Company Number: US-BRISTOL-MYERS SQUIBB COMPANY-14163919

PATIENT
  Age: 63 Year
  Sex: Female
  Weight: 65 kg

DRUGS (1)
  1. AVALIDE [Suspect]
     Dosage: 1 DOSAGE FORM = 150MG/12.5MG

REACTIONS (2)
  - DRUG INEFFECTIVE [None]
  - HYPERTENSION [None]
